FAERS Safety Report 17007258 (Version 1)
Quarter: 2019Q4

REPORT INFORMATION
  Report Type: Spontaneous
  Country: US (occurrence: US)
  Receive Date: 20191108
  Receipt Date: 20191108
  Transmission Date: 20200122
  Serious: Yes (Other)
  Sender: FDA-Public Use
  Company Number: US-SA-2019SA308924

PATIENT
  Sex: Male

DRUGS (1)
  1. ZANTAC 75 [Suspect]
     Active Substance: RANITIDINE HYDROCHLORIDE
     Dosage: SIX TIMES PER WEEK
     Dates: start: 1995

REACTIONS (2)
  - Prostate cancer [Unknown]
  - Anxiety [Unknown]

NARRATIVE: CASE EVENT DATE: 2019
